FAERS Safety Report 7910225-6 (Version None)
Quarter: 2011Q4

REPORT INFORMATION
  Report Type: 
  Country: None (occurrence: None)
  Receive Date: 20111111
  Receipt Date: 20111028
  Transmission Date: 20120403
  Serious: Yes (Other)
  Sender: FDA-Public Use
  Company Number: ID-ROCHE-1006056

PATIENT
  Sex: Female
  Weight: 53 kg

DRUGS (1)
  1. PEGINTERFERON ALFA-2A [Suspect]
     Indication: HEPATITIS B
     Route: 042
     Dates: start: 20110211

REACTIONS (1)
  - ABORTION INDUCED [None]
